FAERS Safety Report 5952999-X (Version None)
Quarter: 2008Q4

REPORT INFORMATION
  Report Type: 
  Country: None (occurrence: None)
  Receive Date: 20081114
  Receipt Date: 20080722
  Transmission Date: 20090506
  Serious: Yes (Other)
  Sender: FDA-Public Use
  Company Number: US-BRISTOL-MYERS SQUIBB COMPANY-14208342

PATIENT
  Age: 65 Year
  Sex: Male

DRUGS (3)
  1. IXEMPRA KIT [Suspect]
     Indication: LUNG SQUAMOUS CELL CARCINOMA STAGE UNSPECIFIED
     Dosage: TOTAL DOSE 67 MG
     Route: 042
     Dates: start: 20080520, end: 20080520
  2. TEMODAR [Suspect]
     Indication: LUNG SQUAMOUS CELL CARCINOMA STAGE UNSPECIFIED
     Route: 048
     Dates: start: 20080513, end: 20080519
  3. NEULASTA [Concomitant]
     Route: 058
     Dates: start: 20080521

REACTIONS (1)
  - NEUTROPENIA [None]
